FAERS Safety Report 23874894 (Version 1)
Quarter: 2024Q2

REPORT INFORMATION
  Report Type: Spontaneous
  Country: US (occurrence: None)
  Receive Date: 20240518
  Receipt Date: 20240518
  Transmission Date: 20240716
  Serious: No
  Sender: FDA-Public Use
  Company Number: None

PATIENT
  Age: 67 Year
  Sex: Male
  Weight: 69.75 kg

DRUGS (12)
  1. NEUPRO [Suspect]
     Active Substance: ROTIGOTINE
     Indication: Restless legs syndrome
     Dosage: 1 PATCH DAILY TOPICAL
     Route: 061
     Dates: start: 20240201
  2. Desvenlaxafine [Concomitant]
  3. fTadalifil [Concomitant]
  4. GABAPENTIN [Concomitant]
     Active Substance: GABAPENTIN
  5. PRAVASTATIN [Concomitant]
     Active Substance: PRAVASTATIN
  6. NEUPRO [Concomitant]
     Active Substance: ROTIGOTINE
  7. Vitx B [Concomitant]
  8. C [Concomitant]
  9. D [Concomitant]
  10. TOCOPHEROL [Concomitant]
     Active Substance: TOCOPHEROL
  11. MAGNESIUM [Concomitant]
     Active Substance: MAGNESIUM
  12. FISH OIL [Concomitant]
     Active Substance: FISH OIL

REACTIONS (2)
  - Dermatitis allergic [None]
  - Application site reaction [None]

NARRATIVE: CASE EVENT DATE: 20240415
